FAERS Safety Report 11633868 (Version 1)
Quarter: 2015Q4

REPORT INFORMATION
  Report Type: Spontaneous
  Country: GB (occurrence: GB)
  Receive Date: 20151015
  Receipt Date: 20151015
  Transmission Date: 20160304
  Serious: Yes (Hospitalization)
  Sender: FDA-Public Use
  Company Number: GB-ROXANE LABORATORIES, INC.-2015-RO-01663RO

PATIENT
  Age: 21 Year
  Sex: Male

DRUGS (1)
  1. QUETIAPINE FUMARATE. [Suspect]
     Active Substance: QUETIAPINE FUMARATE
     Indication: SCHIZOPHRENIA
     Route: 065

REACTIONS (3)
  - Abscess limb [Unknown]
  - Metabolic syndrome [Unknown]
  - Diabetic ketoacidosis [Recovered/Resolved]
